FAERS Safety Report 8874552 (Version 1)
Quarter: 2012Q4

REPORT INFORMATION
  Report Type: 
  Country: US (occurrence: US)
  Receive Date: 20121031
  Receipt Date: 20121031
  Transmission Date: 20130627
  Serious: Yes (Other)
  Sender: FDA-Public Use
  Company Number: US-BAYER-2012-113468

PATIENT
  Age: 34 Year
  Sex: Female

DRUGS (1)
  1. MIRENA [Suspect]
     Indication: CONTRACEPTION
     Dosage: 20 mcg/24hr, CONT
     Route: 015

REACTIONS (7)
  - Post procedural haemorrhage [None]
  - Post procedural haemorrhage [None]
  - Quality of life decreased [None]
  - Weight increased [None]
  - Fatigue [None]
  - Headache [None]
  - Anaemia [None]
